FAERS Safety Report 18759188 (Version 1)
Quarter: 2021Q1

REPORT INFORMATION
  Report Type: Report from Study
  Country: CA (occurrence: CA)
  Receive Date: 20210120
  Receipt Date: 20210120
  Transmission Date: 20210419
  Serious: Yes (Other)
  Sender: FDA-Public Use
  Company Number: CA-JNJFOC-20201033495

PATIENT
  Age: 76 Year
  Sex: Female

DRUGS (2)
  1. YUCCA [Concomitant]
     Indication: ARTHRALGIA
     Route: 065
  2. REMICADE [Suspect]
     Active Substance: INFLIXIMAB
     Indication: RHEUMATOID ARTHRITIS
     Dosage: RESUMED REMICADE INFUSIONS JAN 6, 2021.
     Route: 042

REACTIONS (5)
  - COVID-19 [Recovering/Resolving]
  - Pain [Unknown]
  - Dysphonia [Not Recovered/Not Resolved]
  - Musculoskeletal stiffness [Recovered/Resolved]
  - Nasopharyngitis [Unknown]

NARRATIVE: CASE EVENT DATE: 202010
